FAERS Safety Report 18495698 (Version 1)
Quarter: 2020Q4

REPORT INFORMATION
  Report Type: Spontaneous
  Country: TR (occurrence: TR)
  Receive Date: 20201112
  Receipt Date: 20201112
  Transmission Date: 20210114
  Serious: Yes (Hospitalization, Other)
  Sender: FDA-Public Use
  Company Number: TR-EDENBRIDGE PHARMACEUTICALS, LLC-TR-2020EDE000048

PATIENT
  Age: 13 Year
  Sex: Female
  Weight: 28 kg

DRUGS (1)
  1. PREDNISOLONE SODIUM PHOSPHATE. [Suspect]
     Active Substance: PREDNISOLONE SODIUM PHOSPHATE
     Indication: TAKAYASU^S ARTERITIS
     Dosage: 1 MG/KG, QD

REACTIONS (1)
  - Pneumothorax [Not Recovered/Not Resolved]
